FAERS Safety Report 8596727-0 (Version None)
Quarter: 2012Q3

REPORT INFORMATION
  Report Type: 
  Country: None (occurrence: None)
  Receive Date: 20120802
  Receipt Date: 20120718
  Transmission Date: 20120928
  Serious: Yes (Life-Threatening)
  Sender: FDA-Public Use
  Company Number: GER/UKI/12/0025102

PATIENT
  Age: 52 Year
  Sex: Female

DRUGS (11)
  1. LETROZOLE [Suspect]
     Indication: BREAST CANCER
     Dosage: 2.5 MG, 1 IN 1 D, ORAL
     Route: 048
     Dates: start: 20120506, end: 20120516
  2. CLENIL MODULITE BECLOMETASONE DIPROPIONATE) [Concomitant]
  3. LACTULOSE [Concomitant]
  4. MOMETASONE FUROATE [Concomitant]
  5. FERROUS FUMARATE [Concomitant]
  6. VITAMIN B SUBSTANCES (VITAMIN B COMPLEX) [Concomitant]
  7. LEVOTHYROXINE SODIUM [Concomitant]
  8. OMEPRAZOLE [Concomitant]
  9. ALBUTEROL SULFATE [Concomitant]
  10. DESLORATADINE [Concomitant]
  11. THIAMINE HCL [Concomitant]

REACTIONS (3)
  - JAUNDICE [None]
  - CONDITION AGGRAVATED [None]
  - LIVER DISORDER [None]
